FAERS Safety Report 18618179 (Version 1)
Quarter: 2020Q4

REPORT INFORMATION
  Report Type: Spontaneous
  Country: DE (occurrence: DE)
  Receive Date: 20201215
  Receipt Date: 20201215
  Transmission Date: 20210114
  Serious: Yes (Other)
  Sender: FDA-Public Use
  Company Number: DE-ASTRAZENECA-2020SF61271

PATIENT
  Age: 72 Year
  Sex: Female
  Weight: 89 kg

DRUGS (5)
  1. SIMVASTATIN. [Suspect]
     Active Substance: SIMVASTATIN
     Indication: CORONARY ARTERY DISEASE
     Route: 048
     Dates: end: 2020
  2. ATORVASTATIN [Suspect]
     Active Substance: ATORVASTATIN
     Indication: CORONARY ARTERY DISEASE
     Route: 048
     Dates: start: 2014
  3. CHOLESTYRAMIN [Suspect]
     Active Substance: CHOLESTYRAMINE
     Route: 048
  4. ROSUVASTATIN. [Suspect]
     Active Substance: ROSUVASTATIN
     Route: 048
  5. FENOFIBRAT [Suspect]
     Active Substance: FENOFIBRATE
     Dosage: 250.0MG UNKNOWN
     Route: 048

REACTIONS (3)
  - Muscular weakness [Recovered/Resolved]
  - Extraocular muscle paresis [Recovered/Resolved]
  - Muscle spasms [Recovered/Resolved]

NARRATIVE: CASE EVENT DATE: 2014
